FAERS Safety Report 12297459 (Version 1)
Quarter: 2016Q2

REPORT INFORMATION
  Report Type: Spontaneous
  Country: SE (occurrence: SE)
  Receive Date: 20160422
  Receipt Date: 20160422
  Transmission Date: 20160815
  Serious: Yes (Disabling, Other)
  Sender: FDA-Public Use
  Company Number: SE-ABBVIE-16P-150-1610243-00

PATIENT
  Sex: Male

DRUGS (1)
  1. PROCRIN [Suspect]
     Active Substance: LEUPROLIDE ACETATE
     Indication: PROSTATE CANCER
     Route: 065

REACTIONS (31)
  - Hot flush [Unknown]
  - Breast swelling [Unknown]
  - Testicular atrophy [Unknown]
  - Pollakiuria [Unknown]
  - Blood glucose increased [Unknown]
  - Diabetes mellitus [Unknown]
  - Tinnitus [Unknown]
  - Paraesthesia [Unknown]
  - Constipation [Unknown]
  - Hypotension [Unknown]
  - Dizziness [Unknown]
  - Mood swings [Unknown]
  - Breast tenderness [Unknown]
  - Lipids increased [Unknown]
  - Musculoskeletal pain [Unknown]
  - Fatigue [Unknown]
  - Decreased appetite [Unknown]
  - Diarrhoea [Unknown]
  - Hyperhidrosis [Unknown]
  - Muscular weakness [Unknown]
  - Arthralgia [Unknown]
  - Libido decreased [Unknown]
  - Abdominal pain [Unknown]
  - Urinary retention [Unknown]
  - Dyspnoea [Unknown]
  - Deafness [Unknown]
  - Erectile dysfunction [Unknown]
  - Oedema [Unknown]
  - Weight increased [Unknown]
  - Musculoskeletal stiffness [Unknown]
  - Breast enlargement [Unknown]

NARRATIVE: CASE EVENT DATE: 2005
